FAERS Safety Report 9437669 (Version 2)
Quarter: 2013Q4

REPORT INFORMATION
  Report Type: Spontaneous
  Country: CA (occurrence: CA)
  Receive Date: 20130802
  Receipt Date: 20131111
  Transmission Date: 20140711
  Serious: Yes (Life-Threatening, Hospitalization)
  Sender: FDA-Public Use
  Company Number: PHHY2013CA081735

PATIENT
  Age: 37 Year
  Sex: Female

DRUGS (8)
  1. MORPHINE [Suspect]
     Indication: PAIN
     Dosage: 0.1 MG
     Route: 039
  2. MORPHINE [Interacting]
     Dosage: 1 MG
     Route: 042
  3. MORPHINE [Interacting]
     Dosage: 2 MG
     Route: 058
  4. MORPHINE [Interacting]
     Dosage: 2 MG
  5. FENTANYL [Interacting]
     Dosage: 0.01 MG, UNK
     Route: 037
  6. KETOROLAC [Suspect]
     Dosage: 30 MG, UNK
     Route: 042
  7. PARACETAMOL [Suspect]
     Dosage: 1300 MG, UNK
     Route: 051
  8. BUPIVACAINE [Suspect]

REACTIONS (6)
  - Respiratory depression [Unknown]
  - Respiratory rate decreased [Unknown]
  - Unresponsive to stimuli [Recovered/Resolved]
  - Blood pressure increased [Unknown]
  - Drug interaction [Unknown]
  - Maternal exposure during pregnancy [Unknown]
